FAERS Safety Report 4335020-9 (Version None)
Quarter: 2004Q2

REPORT INFORMATION
  Report Type: 
  Country: None (occurrence: None)
  Receive Date: 20040408
  Receipt Date: 20030610
  Transmission Date: 20050107
  Serious: Yes (Death)
  Sender: FDA-Public Use
  Company Number: US-GLAXOSMITHKLINE-A0412078A

PATIENT
  Age: 37 Year
  Sex: Male
  Weight: 72.7 kg

DRUGS (1)
  1. PAXIL [Suspect]
     Indication: DEPRESSION
     Route: 048
     Dates: start: 20021109

REACTIONS (1)
  - COMPLETED SUICIDE [None]
